FAERS Safety Report 24723280 (Version 1)
Quarter: 2024Q4

REPORT INFORMATION
  Report Type: Spontaneous
  Country: ES (occurrence: ES)
  Receive Date: 20241211
  Receipt Date: 20241211
  Transmission Date: 20250115
  Serious: Yes (Death, Other)
  Sender: PFIZER
  Company Number: ES-LEO Pharma-375583

PATIENT
  Age: 57 Year
  Sex: Female
  Weight: 77 kg

DRUGS (8)
  1. OXALIPLATIN [Suspect]
     Active Substance: OXALIPLATIN
     Indication: Colon cancer metastatic
     Dosage: UNK
  2. OXALIPLATIN [Suspect]
     Active Substance: OXALIPLATIN
     Dosage: UNK
  3. LEUCOVORIN CALCIUM [Suspect]
     Active Substance: LEUCOVORIN CALCIUM
     Indication: Colon cancer metastatic
     Dosage: UNK
  4. LEUCOVORIN CALCIUM [Suspect]
     Active Substance: LEUCOVORIN CALCIUM
     Dosage: UNK
  5. FLUOROURACIL [Suspect]
     Active Substance: FLUOROURACIL
     Indication: Colon cancer metastatic
     Dosage: UNK
  6. FLUOROURACIL [Suspect]
     Active Substance: FLUOROURACIL
     Dosage: UNK
  7. INNOHEP [Suspect]
     Active Substance: TINZAPARIN SODIUM
     Indication: Deep vein thrombosis
     Dosage: 14000 IU, 1X/DAY
     Dates: start: 202009
  8. INNOHEP [Suspect]
     Active Substance: TINZAPARIN SODIUM
     Dosage: UNK
     Dates: start: 202101

REACTIONS (4)
  - Neoplasm progression [Fatal]
  - Pulmonary embolism [Unknown]
  - Rectal haemorrhage [Recovered/Resolved]
  - Haemoglobin decreased [Unknown]

NARRATIVE: CASE EVENT DATE: 20210101
